FAERS Safety Report 12196954 (Version 3)
Quarter: 2016Q1

REPORT INFORMATION
  Report Type: Report from Study
  Country: AU (occurrence: AU)
  Receive Date: 20160321
  Receipt Date: 20160323
  Transmission Date: 20160526
  Serious: Yes (Other)
  Sender: FDA-Public Use
  Company Number: AU-ALLERGAN-1651081US

PATIENT
  Age: 53 Year
  Sex: Male

DRUGS (2)
  1. BIMATOPROST. [Suspect]
     Active Substance: BIMATOPROST
     Dosage: 10 MCG, SINGLE
     Route: 047
     Dates: start: 201507
  2. BIMATOPROST. [Suspect]
     Active Substance: BIMATOPROST
     Indication: OCULAR HYPERTENSION
     Dosage: 10 MCG, SINGLE
     Route: 047
     Dates: start: 20151230

REACTIONS (1)
  - Corneal touch [Not Recovered/Not Resolved]

NARRATIVE: CASE EVENT DATE: 2016
